FAERS Safety Report 10144350 (Version 1)
Quarter: 2014Q2

REPORT INFORMATION
  Report Type: Spontaneous
  Country: US (occurrence: US)
  Receive Date: 20140430
  Receipt Date: 20140430
  Transmission Date: 20141212
  Serious: Yes (Other)
  Sender: FDA-Public Use
  Company Number: US-BAXTER-2014BAX020607

PATIENT
  Age: 5 Year
  Sex: Male

DRUGS (3)
  1. GAMMAGARD LIQUID [Suspect]
     Indication: ANTI-NMDA ANTIBODY
     Route: 042
  2. GAMMAGARD LIQUID [Suspect]
     Indication: OFF LABEL USE
  3. AZITHROMYCIN [Suspect]
     Indication: PNEUMONIA MYCOPLASMAL
     Route: 065

REACTIONS (2)
  - Dysarthria [Unknown]
  - Muscle twitching [Unknown]
